FAERS Safety Report 7511437-6 (Version None)
Quarter: 2011Q2

REPORT INFORMATION
  Report Type: 
  Country: None (occurrence: None)
  Receive Date: 20110531
  Receipt Date: 20110524
  Transmission Date: 20111010
  Serious: Yes (Other)
  Sender: FDA-Public Use
  Company Number: CH-US-EMD SERONO, INC.-7048146

PATIENT
  Sex: Female

DRUGS (1)
  1. REBIF [Suspect]
     Indication: MULTIPLE SCLEROSIS
     Route: 058
     Dates: start: 20100801

REACTIONS (3)
  - NYSTAGMUS [None]
  - URGE INCONTINENCE [None]
  - MALIGNANT MELANOMA [None]
